FAERS Safety Report 8358075-3 (Version None)
Quarter: 2012Q2

REPORT INFORMATION
  Report Type: 
  Country: None (occurrence: None)
  Receive Date: 20120514
  Receipt Date: 20120509
  Transmission Date: 20120825
  Serious: Yes (Life-Threatening, Other)
  Sender: FDA-Public Use
  Company Number: JP-ROCHE-1061965

PATIENT
  Sex: Female
  Weight: 41 kg

DRUGS (3)
  1. PACLITAXEL [Concomitant]
     Indication: BREAST CANCER METASTATIC
     Dosage: DOSAGE IS UNCERTAIN.
     Route: 041
     Dates: start: 20120203, end: 20120315
  2. AVASTIN [Suspect]
     Indication: BREAST CANCER METASTATIC
     Route: 041
     Dates: start: 20120315, end: 20120330
  3. PACLITAXEL [Concomitant]
     Route: 041
     Dates: start: 20120315, end: 20120330

REACTIONS (10)
  - PNEUMONIA [None]
  - RENAL FAILURE [None]
  - BACTERAEMIA [None]
  - PLEURAL EFFUSION [None]
  - DEVICE RELATED INFECTION [None]
  - DELIRIUM [None]
  - SEPTIC SHOCK [None]
  - FEBRILE NEUTROPENIA [None]
  - HEPATIC FUNCTION ABNORMAL [None]
  - RESPIRATORY FAILURE [None]
